FAERS Safety Report 16728570 (Version 1)
Quarter: 2019Q3

REPORT INFORMATION
  Report Type: Spontaneous
  Country: US (occurrence: US)
  Receive Date: 20190822
  Receipt Date: 20190822
  Transmission Date: 20191005
  Serious: Yes (Other)
  Sender: FDA-Public Use
  Company Number: US-TEVA-2019-US-1097555

PATIENT
  Sex: Male

DRUGS (1)
  1. AJOVY [Suspect]
     Active Substance: FREMANEZUMAB-VFRM
     Dosage: ON AJOVY FOR 3 MONTHS
     Dates: start: 2019

REACTIONS (4)
  - Skin disorder [Unknown]
  - Injection site pain [Unknown]
  - Injection site erythema [Unknown]
  - Cellulitis [Unknown]

NARRATIVE: CASE EVENT DATE: 2019
